FAERS Safety Report 26058612 (Version 1)
Quarter: 2025Q4

REPORT INFORMATION
  Report Type: Spontaneous
  Country: CA (occurrence: CA)
  Receive Date: 20251118
  Receipt Date: 20251118
  Transmission Date: 20260118
  Serious: Yes (Other)
  Sender: AZURITY PHARMACEUTICALS
  Company Number: CA-AZURITY PHARMACEUTICALS, INC.-AZR202511-003416

PATIENT
  Age: 51 Year
  Sex: Male
  Weight: 112 kg

DRUGS (1)
  1. OMNARIS [Suspect]
     Active Substance: CICLESONIDE
     Indication: Nasal congestion
     Dosage: 4 DOSAGE FORM, UNK
     Route: 045

REACTIONS (3)
  - Chest pain [Recovered/Resolved]
  - Eye pain [Recovered/Resolved]
  - Headache [Recovered/Resolved]
